FAERS Safety Report 7462651-X (Version None)
Quarter: 2011Q2

REPORT INFORMATION
  Report Type: 
  Country: None (occurrence: None)
  Receive Date: 20110506
  Receipt Date: 20110502
  Transmission Date: 20111010
  Serious: Yes (Death, Hospitalization, Other)
  Sender: FDA-Public Use
  Company Number: PHHY2009US66807

PATIENT
  Sex: Male

DRUGS (41)
  1. EXJADE [Suspect]
     Dosage: 3500 MG, DAILY
     Route: 048
  2. AZITHROMYCIN [Concomitant]
  3. AZTREONAM [Concomitant]
  4. TRAMSULOSIN [Concomitant]
  5. ACETAMINOPHEN [Concomitant]
  6. PERCOCET [Concomitant]
  7. PROVENTIL [Concomitant]
  8. KLOR-CON [Concomitant]
  9. MYCAMINE [Concomitant]
  10. LASIX [Concomitant]
  11. CARDIZEM [Concomitant]
  12. EXJADE [Suspect]
     Indication: PORPHYRIN METABOLISM DISORDER
     Dosage: 500 MG, BID
     Route: 048
  13. DILTIAZEM [Concomitant]
  14. HYDROXYUREA [Concomitant]
  15. NYSTATIN [Concomitant]
  16. METHOTREXATE [Concomitant]
  17. SPIRIVA [Concomitant]
  18. CORDARONE [Concomitant]
  19. AZACTAM [Concomitant]
  20. MACROBID [Concomitant]
  21. DIGOXIN [Concomitant]
  22. COUMADIN [Concomitant]
  23. AVODART [Concomitant]
  24. ALBUTEROL [Concomitant]
  25. PROAIR HFA [Concomitant]
  26. VITAMIN B-12 [Concomitant]
  27. FLUCONAZOLE [Concomitant]
  28. MEGACE [Concomitant]
  29. CRESTOR [Concomitant]
  30. OMEGA-3 FATTY ACIDS [Concomitant]
  31. ZOCOR [Concomitant]
  32. OXYCODONE [Concomitant]
  33. EXJADE [Suspect]
     Dosage: 2000 MG, QD
     Route: 048
  34. AMIODARONE [Concomitant]
  35. LEVAQUIN [Concomitant]
  36. TRICOR [Concomitant]
  37. LOVAZA [Concomitant]
  38. MULTI-VITAMINS [Concomitant]
  39. SINGULAIR [Concomitant]
  40. BACTRIM [Concomitant]
  41. SIMVASTATIN [Concomitant]

REACTIONS (32)
  - PLEURISY [None]
  - PYREXIA [None]
  - URINARY TRACT INFECTION BACTERIAL [None]
  - ASTHENIA [None]
  - OROPHARYNGEAL PAIN [None]
  - PNEUMONIA [None]
  - ORAL PAIN [None]
  - OEDEMA PERIPHERAL [None]
  - URINARY RETENTION [None]
  - OESOPHAGEAL CANDIDIASIS [None]
  - CANDIDIASIS [None]
  - MUSCULOSKELETAL PAIN [None]
  - GENERALISED ERYTHEMA [None]
  - MUSCLE SPASMS [None]
  - PULMONARY CONGESTION [None]
  - COUGH [None]
  - WEIGHT DECREASED [None]
  - NEOPLASM MALIGNANT [None]
  - FLUID OVERLOAD [None]
  - LETHARGY [None]
  - APHAGIA [None]
  - MALAISE [None]
  - FATIGUE [None]
  - HYPOXIA [None]
  - MALNUTRITION [None]
  - MUSCULAR WEAKNESS [None]
  - CHEST PAIN [None]
  - SERUM FERRITIN INCREASED [None]
  - DIARRHOEA [None]
  - DYSPNOEA [None]
  - GAIT DISTURBANCE [None]
  - SYSTEMIC LUPUS ERYTHEMATOSUS [None]
